FAERS Safety Report 20830821 (Version 1)
Quarter: 2022Q2

REPORT INFORMATION
  Report Type: Spontaneous
  Country: US (occurrence: US)
  Receive Date: 20220515
  Receipt Date: 20220515
  Transmission Date: 20220720
  Serious: Yes (Other)
  Sender: FDA-Public Use
  Company Number: US-BRISTOL-MYERS SQUIBB COMPANY-2022-029175

PATIENT
  Age: 74 Year
  Sex: Female
  Weight: 119 kg

DRUGS (1)
  1. REVLIMID [Suspect]
     Active Substance: LENALIDOMIDE
     Indication: Plasma cell myeloma
     Dosage: DAYS 1-21, EVERY 28 DAYS
     Route: 048
     Dates: start: 20200921

REACTIONS (3)
  - Diarrhoea [Unknown]
  - Glaucoma [Unknown]
  - Off label use [Unknown]
